FAERS Safety Report 6382725-4 (Version None)
Quarter: 2009Q3

REPORT INFORMATION
  Report Type: 
  Country: None (occurrence: None)
  Receive Date: 20090928
  Receipt Date: 20090928
  Transmission Date: 20100115
  Serious: Yes (Other)
  Sender: FDA-Public Use
  Company Number: None

PATIENT
  Sex: Female
  Weight: 77.1115 kg

DRUGS (2)
  1. CYMBALTA [Suspect]
     Indication: ANXIETY
     Dosage: 60MG EVERY DAY PO
     Route: 048
     Dates: start: 20090113, end: 20090920
  2. CYMBALTA [Suspect]
     Indication: STRESS
     Dosage: 60MG EVERY DAY PO
     Route: 048
     Dates: start: 20090113, end: 20090920

REACTIONS (2)
  - DRUG WITHDRAWAL SYNDROME [None]
  - NERVOUS SYSTEM DISORDER [None]
